FAERS Safety Report 16632933 (Version 2)
Quarter: 2019Q4

REPORT INFORMATION
  Report Type: Report from Study
  Country: US (occurrence: US)
  Receive Date: 20190725
  Receipt Date: 20191002
  Transmission Date: 20200122
  Serious: Yes (Death, Hospitalization)
  Sender: FDA-Public Use
  Company Number: US-ACTELION-A-NJ2016-138468

PATIENT
  Age: 82 Year
  Sex: Female
  Weight: 59.86 kg

DRUGS (5)
  1. ELIQUIS [Concomitant]
     Active Substance: APIXABAN
  2. ADCIRCA [Concomitant]
     Active Substance: TADALAFIL
  3. TRACLEER [Suspect]
     Active Substance: BOSENTAN
     Dosage: UNK
     Route: 048
  4. ADEMPAS [Concomitant]
     Active Substance: RIOCIGUAT
  5. TRACLEER [Suspect]
     Active Substance: BOSENTAN
     Indication: PULMONARY ARTERIAL HYPERTENSION
     Dosage: 125 MG, BID
     Route: 048
     Dates: start: 20140701

REACTIONS (16)
  - Hospitalisation [Unknown]
  - Blood pressure fluctuation [Unknown]
  - Condition aggravated [Unknown]
  - Dyspnoea [Unknown]
  - Oedema [Unknown]
  - Transfusion [Unknown]
  - Femur fracture [Unknown]
  - Peripheral swelling [Unknown]
  - Gait disturbance [Unknown]
  - Fall [Unknown]
  - Fluid overload [Unknown]
  - Haemoglobin decreased [Unknown]
  - Feeling abnormal [Unknown]
  - Dyspnoea exertional [Unknown]
  - Limb discomfort [Unknown]
  - Death [Fatal]

NARRATIVE: CASE EVENT DATE: 201812
